FAERS Safety Report 11216396 (Version 2)
Quarter: 2015Q3

REPORT INFORMATION
  Report Type: Spontaneous
  Country: US (occurrence: US)
  Receive Date: 20150624
  Receipt Date: 20150707
  Transmission Date: 20151125
  Serious: Yes (Hospitalization, Other)
  Sender: FDA-Public Use
  Company Number: US-GLAXOSMITHKLINE-US2015088281

PATIENT
  Age: 63 Year
  Sex: Female

DRUGS (9)
  1. COREG [Suspect]
     Active Substance: CARVEDILOL
     Indication: LABILE BLOOD PRESSURE
     Dosage: 12.50 MG, QID
  2. CARVEDILOL PHOSPHATE. [Suspect]
     Active Substance: CARVEDILOL PHOSPHATE
     Indication: PRODUCT USED FOR UNKNOWN INDICATION
     Dosage: UNK, U
     Route: 065
  3. ATIVAN [Concomitant]
     Active Substance: LORAZEPAM
     Dosage: UNK, PRN
  4. CARVEDILOL. [Suspect]
     Active Substance: CARVEDILOL
     Indication: LABILE BLOOD PRESSURE
     Dosage: 12.50 MG, QID
     Route: 048
     Dates: start: 2013
  5. ASPIRIN. [Concomitant]
     Active Substance: ASPIRIN
  6. COREG [Suspect]
     Active Substance: CARVEDILOL
     Indication: AUTONOMIC NERVOUS SYSTEM IMBALANCE
  7. CARVEDILOL. [Suspect]
     Active Substance: CARVEDILOL
     Indication: AUTONOMIC NERVOUS SYSTEM IMBALANCE
  8. ZOFRAN [Concomitant]
     Active Substance: ONDANSETRON HYDROCHLORIDE
     Dosage: UNK, PRN
  9. PEPCID [Concomitant]
     Active Substance: FAMOTIDINE
     Dosage: UNK, PRN

REACTIONS (3)
  - Hypotension [Unknown]
  - Drug ineffective [Recovered/Resolved]
  - Impaired gastric emptying [Recovering/Resolving]

NARRATIVE: CASE EVENT DATE: 201505
